FAERS Safety Report 5514668-X (Version None)
Quarter: 2007Q4

REPORT INFORMATION
  Report Type: 
  Country: None (occurrence: None)
  Receive Date: 20071113
  Receipt Date: 20071101
  Transmission Date: 20080405
  Serious: Yes (Other)
  Sender: FDA-Public Use
  Company Number: GB-PFIZER INC-2007081906

PATIENT
  Sex: Female
  Weight: 64 kg

DRUGS (6)
  1. LYRICA [Suspect]
     Route: 048
  2. AMITRIPTYLINE HCL [Concomitant]
     Route: 048
  3. ALENDRONATE SODIUM [Concomitant]
  4. BOTOX [Concomitant]
  5. ZOPICLONE [Concomitant]
     Route: 048
  6. OMEPRAZOLE [Concomitant]
     Route: 048

REACTIONS (12)
  - APHASIA [None]
  - CONVULSION [None]
  - CYANOSIS [None]
  - FEELING ABNORMAL [None]
  - LOSS OF CONSCIOUSNESS [None]
  - MUSCLE SPASMS [None]
  - MUSCLE TWITCHING [None]
  - MUSCULAR WEAKNESS [None]
  - SKIN DISCOLOURATION [None]
  - SOMNOLENCE [None]
  - TONGUE DISORDER [None]
  - TREMOR [None]
